FAERS Safety Report 8129166-7 (Version None)
Quarter: 2012Q1

REPORT INFORMATION
  Report Type: 
  Country: None (occurrence: None)
  Receive Date: 20120210
  Receipt Date: 20111028
  Transmission Date: 20120608
  Serious: Yes (Other)
  Sender: FDA-Public Use
  Company Number: US-BRISTOL-MYERS SQUIBB COMPANY-16204711

PATIENT
  Age: 19 Year
  Sex: Female

DRUGS (1)
  1. ORENCIA [Suspect]
     Indication: JUVENILE ARTHRITIS
     Dosage: LAST INFUSION ON 18OCT2011.
     Route: 042
     Dates: start: 20100601

REACTIONS (3)
  - FLUSHING [None]
  - DIZZINESS [None]
  - DYSPNOEA [None]
